FAERS Safety Report 6203058-2 (Version None)
Quarter: 2009Q2

REPORT INFORMATION
  Report Type: 
  Country: None (occurrence: None)
  Receive Date: 20090521
  Receipt Date: 20090521
  Transmission Date: 20091009
  Serious: Yes (Disabling, Other)
  Sender: FDA-Public Use
  Company Number: None

PATIENT
  Sex: Female
  Weight: 81.6475 kg

DRUGS (3)
  1. CYMBALTA [Suspect]
     Indication: ANXIETY
     Dosage: 60 MG 1 X PER DAY BUCCAL
     Route: 002
     Dates: start: 20080813, end: 20090516
  2. CYMBALTA [Suspect]
     Indication: DEPRESSION
     Dosage: 60 MG 1 X PER DAY BUCCAL
     Route: 002
     Dates: start: 20080813, end: 20090516
  3. CYMBALTA [Suspect]
     Indication: TENSION HEADACHE
     Dosage: 60 MG 1 X PER DAY BUCCAL
     Route: 002
     Dates: start: 20080813, end: 20090516

REACTIONS (4)
  - ANXIETY [None]
  - DEPRESSION [None]
  - DRUG INEFFECTIVE [None]
  - SUICIDE ATTEMPT [None]
